FAERS Safety Report 8531464-X (Version None)
Quarter: 2012Q3

REPORT INFORMATION
  Report Type: 
  Country: None (occurrence: None)
  Receive Date: 20120723
  Receipt Date: 20120712
  Transmission Date: 20120928
  Serious: Yes (Other)
  Sender: FDA-Public Use
  Company Number: JP-VERTEX PHARMACEUTICALS INC.-AE-2012-003086

PATIENT
  Age: 61 Year
  Sex: Female

DRUGS (27)
  1. TELAVIC (TELAPREVIR) [Suspect]
     Indication: HEPATITIS C
     Route: 048
     Dates: start: 20120107, end: 20120129
  2. TELAVIC (TELAPREVIR) [Suspect]
     Route: 048
     Dates: start: 20120130, end: 20120325
  3. REBETOL [Concomitant]
     Route: 048
     Dates: start: 20120604, end: 20120610
  4. LIVALO [Concomitant]
     Route: 048
     Dates: end: 20120113
  5. PEGINTERFERON ALFA-2B [Concomitant]
     Route: 058
     Dates: start: 20120319, end: 20120319
  6. PEGINTERFERON ALFA-2B [Concomitant]
     Route: 058
     Dates: start: 20120424, end: 20120618
  7. EPADEL S [Concomitant]
     Route: 048
  8. CLARITIN REDITABS [Concomitant]
     Route: 048
  9. PEGINTERFERON ALFA-2B [Concomitant]
     Route: 058
     Dates: start: 20120213
  10. REBETOL [Concomitant]
     Indication: HEPATITIS C
     Route: 048
     Dates: start: 20120107, end: 20120129
  11. REBETOL [Concomitant]
     Route: 048
     Dates: start: 20120430, end: 20120520
  12. REBETOL [Concomitant]
     Route: 048
     Dates: start: 20120521, end: 20120527
  13. EPADEL [Concomitant]
     Route: 048
  14. REBETOL [Concomitant]
     Route: 048
     Dates: start: 20120213
  15. SLOW-K [Concomitant]
     Route: 048
  16. DOGMATYL [Concomitant]
     Route: 048
  17. REBETOL [Concomitant]
     Route: 048
     Dates: start: 20120312, end: 20120318
  18. PEGINTERFERON ALFA-2B [Concomitant]
     Route: 058
     Dates: start: 20120326, end: 20120409
  19. REBETOL [Concomitant]
     Route: 048
     Dates: start: 20120130, end: 20120212
  20. REBETOL [Concomitant]
     Route: 048
     Dates: start: 20120528, end: 20120603
  21. FEROTYM [Concomitant]
     Route: 048
  22. CLARITIN [Concomitant]
     Route: 048
  23. REBETOL [Concomitant]
     Route: 048
     Dates: end: 20120311
  24. REBETOL [Concomitant]
     Route: 048
     Dates: start: 20120611, end: 20120618
  25. PEGINTERFERON ALFA-2B [Concomitant]
     Indication: HEPATITIS C
     Route: 058
     Dates: start: 20120107, end: 20120206
  26. PEGINTERFERON ALFA-2B [Concomitant]
     Route: 058
     Dates: end: 20120312
  27. PEGINTERFERON ALFA-2B [Concomitant]
     Route: 058
     Dates: start: 20120416, end: 20120416

REACTIONS (4)
  - RENAL DISORDER [None]
  - RASH [None]
  - PLATELET COUNT DECREASED [None]
  - ANAEMIA [None]
